FAERS Safety Report 6146857-8 (Version None)
Quarter: 2009Q2

REPORT INFORMATION
  Report Type: 
  Country: None (occurrence: None)
  Receive Date: 20090407
  Receipt Date: 20090327
  Transmission Date: 20091009
  Serious: Yes (Other)
  Sender: FDA-Public Use
  Company Number: US-PFIZER INC-2008101439

PATIENT
  Sex: Female

DRUGS (3)
  1. SERTRALINE HCL [Suspect]
  2. VITAMIN TAB [Concomitant]
     Indication: ANXIETY
  3. VITAMIN TAB [Concomitant]
     Indication: DEPRESSION

REACTIONS (4)
  - CAESAREAN SECTION [None]
  - NAUSEA [None]
  - PLACENTA ACCRETA [None]
  - PLACENTA PRAEVIA [None]
